FAERS Safety Report 11344169 (Version 2)
Quarter: 2015Q4

REPORT INFORMATION
  Report Type: Spontaneous
  Country: US (occurrence: US)
  Receive Date: 20150806
  Receipt Date: 20151124
  Transmission Date: 20160304
  Serious: No
  Sender: FDA-Public Use
  Company Number: US-CELGENEUS-USA-2015062854

PATIENT
  Sex: Male

DRUGS (1)
  1. REVLIMID [Suspect]
     Active Substance: LENALIDOMIDE
     Indication: PLASMA CELL MYELOMA
     Dosage: 10 MILLIGRAM
     Route: 048
     Dates: start: 20150601

REACTIONS (8)
  - Blister [Unknown]
  - Nasopharyngitis [Unknown]
  - Pruritus [Not Recovered/Not Resolved]
  - Oropharyngeal pain [Unknown]
  - Skin exfoliation [Unknown]
  - Dry mouth [Unknown]
  - Muscle spasms [Unknown]
  - Cough [Not Recovered/Not Resolved]

NARRATIVE: CASE EVENT DATE: 2015
